FAERS Safety Report 21492583 (Version 3)
Quarter: 2022Q4

REPORT INFORMATION
  Report Type: Report from Study
  Country: CH (occurrence: CH)
  Receive Date: 20221021
  Receipt Date: 20221122
  Transmission Date: 20230112
  Serious: Yes (Hospitalization)
  Sender: FDA-Public Use
  Company Number: CH-ABBVIE-4165495

PATIENT
  Age: 73 Year
  Sex: Male

DRUGS (4)
  1. CARBIDOPA\LEVODOPA [Suspect]
     Active Substance: CARBIDOPA\LEVODOPA
     Indication: Parkinson^s disease
     Dosage: MD: 4.0 ML, CRD: 2.6 ML/H, ED: 1.8 ML, CRN: 1.3 ML/H
     Route: 050
     Dates: start: 20221112, end: 20221117
  2. CARBIDOPA\LEVODOPA [Suspect]
     Active Substance: CARBIDOPA\LEVODOPA
     Route: 050
     Dates: start: 20180702
  3. CARBIDOPA\LEVODOPA [Suspect]
     Active Substance: CARBIDOPA\LEVODOPA
     Dosage: MD: 7.0 ML, CRD: 2.3 ML/H, ED: 2.0 ML, CRN: 1.2 ML/H?24 H THERAPY
     Route: 050
     Dates: start: 20220811, end: 20221112
  4. CARBIDOPA\LEVODOPA [Suspect]
     Active Substance: CARBIDOPA\LEVODOPA
     Dosage: MD: 7.0 ML, CRD: 2.6 ML/H, ED: 1.8 ML, CRN: 1.3 ML/H, 24 H THERAPY
     Route: 050
     Dates: start: 20221117

REACTIONS (4)
  - Embedded device [Recovered/Resolved with Sequelae]
  - Device issue [Not Recovered/Not Resolved]
  - Procedural haemorrhage [Not Recovered/Not Resolved]
  - Haemorrhage [Not Recovered/Not Resolved]

NARRATIVE: CASE EVENT DATE: 20221006
